FAERS Safety Report 6363485-X (Version None)
Quarter: 2009Q3

REPORT INFORMATION
  Report Type: 
  Country: None (occurrence: None)
  Receive Date: 20090919
  Receipt Date: 20090630
  Transmission Date: 20100115
  Serious: No
  Sender: FDA-Public Use
  Company Number: US-ABBOTT-09P-163-0582570-00

PATIENT
  Sex: Female
  Weight: 62.652 kg

DRUGS (3)
  1. HUMIRA [Suspect]
     Indication: RHEUMATOID ARTHRITIS
     Dates: start: 20090612
  2. UNKNOWN [Concomitant]
     Indication: BLOOD PRESSURE
  3. UNKNOWN [Concomitant]
     Indication: DIABETES MELLITUS

REACTIONS (2)
  - HEADACHE [None]
  - INJECTION SITE ERYTHEMA [None]
